FAERS Safety Report 17713133 (Version 1)
Quarter: 2020Q2

REPORT INFORMATION
  Report Type: Report from Study
  Country: US (occurrence: US)
  Receive Date: 20200427
  Receipt Date: 20200427
  Transmission Date: 20200714
  Serious: No
  Sender: FDA-Public Use
  Company Number: US-BIOVITRUM-2020US0307

PATIENT
  Age: 51 Year
  Sex: Female

DRUGS (2)
  1. KINERET [Suspect]
     Active Substance: ANAKINRA
     Indication: PERICARDITIS CONSTRICTIVE
     Route: 058
     Dates: start: 20190410
  2. KINERET [Suspect]
     Active Substance: ANAKINRA
     Route: 058
     Dates: start: 20190410

REACTIONS (7)
  - Burning sensation [Unknown]
  - Arthralgia [Unknown]
  - Off label use [Recovering/Resolving]
  - Epicondylitis [Unknown]
  - Musculoskeletal pain [Unknown]
  - Flushing [Unknown]
  - Rotator cuff syndrome [Unknown]

NARRATIVE: CASE EVENT DATE: 20190410
